FAERS Safety Report 6029439-8 (Version None)
Quarter: 2009Q1

REPORT INFORMATION
  Report Type: 
  Country: None (occurrence: None)
  Receive Date: 20090105
  Receipt Date: 20081226
  Transmission Date: 20090719
  Serious: Yes (Death)
  Sender: FDA-Public Use
  Company Number: US025227

PATIENT
  Age: 84 Year
  Sex: Male
  Weight: 79.3795 kg

DRUGS (18)
  1. ACTIQ [Suspect]
     Indication: CANCER PAIN
     Dosage: PRN BUCCAL
     Route: 002
  2. FENTANL [Concomitant]
  3. IRINOTECAN HCL [Concomitant]
  4. ZOCOR [Concomitant]
  5. AVODART [Concomitant]
  6. TOPROL-XL [Concomitant]
  7. NEXIUM [Concomitant]
  8. AMITRIPTYLINE HCL [Concomitant]
  9. FOLIC ACID [Concomitant]
  10. ASCORBIC ACID [Concomitant]
  11. SLOW-FE [Concomitant]
  12. HOMOCYSTEINE MODULATOR [Concomitant]
  13. CITRUCEL [Concomitant]
  14. ADVAIR DISKUS 250/50 [Concomitant]
  15. PROVENTIL [Concomitant]
  16. OXYCODONE [Concomitant]
  17. MEGESTROL ACETATE [Concomitant]
  18. ONCOLYN [Concomitant]

REACTIONS (1)
  - CARDIO-RESPIRATORY ARREST [None]
